FAERS Safety Report 19774075 (Version 5)
Quarter: 2022Q1

REPORT INFORMATION
  Report Type: Report from Study
  Country: US (occurrence: US)
  Receive Date: 20210901
  Receipt Date: 20220323
  Transmission Date: 20220423
  Serious: Yes (Other)
  Sender: FDA-Public Use
  Company Number: US-IPSEN BIOPHARMACEUTICALS, INC.-2021-21106

PATIENT
  Age: 60 Year
  Sex: Female
  Weight: 108 kg

DRUGS (16)
  1. SOMATULINE DEPOT [Suspect]
     Active Substance: LANREOTIDE ACETATE
     Indication: Small intestine carcinoma
     Dosage: 120 MG EVERY 4 WEEKS
     Route: 058
     Dates: start: 2018
  2. SANDOSTATIN [Suspect]
     Active Substance: OCTREOTIDE ACETATE
     Indication: Product used for unknown indication
     Route: 065
  3. VITAMIN D3 [Concomitant]
     Active Substance: CHOLECALCIFEROL
     Route: 048
     Dates: start: 20210615
  4. ESZOPICLONE [Concomitant]
     Active Substance: ESZOPICLONE
     Route: 048
     Dates: start: 20210707
  5. INSULIN LISPRO [Concomitant]
     Active Substance: INSULIN LISPRO
     Dosage: 100 UNITS/ML
     Route: 058
     Dates: start: 20210315
  6. LANTUS SOLOSTAR [Concomitant]
     Active Substance: INSULIN GLARGINE
     Dosage: 100 UNIT/ML
     Route: 058
     Dates: start: 20210525
  7. METOCLOPRAMIDE [Concomitant]
     Active Substance: METOCLOPRAMIDE
     Route: 048
     Dates: start: 20210407
  8. OCTREOTIDE ACETATE [Concomitant]
     Active Substance: OCTREOTIDE ACETATE
     Dosage: 2-3 TIMES A DAY PRIOR TO LANREOTIDE DOSING
     Dates: start: 20210407
  9. OMEPRAZOLE [Concomitant]
     Active Substance: OMEPRAZOLE
     Route: 048
     Dates: start: 20210707
  10. OXYCODONE [Concomitant]
     Active Substance: OXYCODONE
     Route: 048
     Dates: start: 20200817
  11. PREGABALIN [Concomitant]
     Active Substance: PREGABALIN
     Route: 048
     Dates: start: 20210617
  12. TELMISARTAN [Concomitant]
     Active Substance: TELMISARTAN
     Dosage: ONE AND HALF TABLET
     Route: 048
  13. VENLAFAXINE HYDROCHLORIDE [Concomitant]
     Active Substance: VENLAFAXINE HYDROCHLORIDE
     Route: 048
     Dates: start: 20210707
  14. COVID-19 VACCINE [Concomitant]
     Dosage: MODERNA US. INC
     Dates: start: 20210219
  15. COVID-19 VACCINE [Concomitant]
     Dosage: MODERNA US. INC
     Dates: start: 20210319
  16. VITAMINS [Concomitant]
     Active Substance: VITAMINS

REACTIONS (6)
  - Abdominal pain upper [Recovered/Resolved]
  - Feeding intolerance [Recovered/Resolved]
  - Injection site scar [Recovered/Resolved]
  - Injection site haemorrhage [Recovered/Resolved]
  - Disease progression [Recovering/Resolving]
  - Injection site mass [Not Recovered/Not Resolved]

NARRATIVE: CASE EVENT DATE: 20210301
